FAERS Safety Report 17713187 (Version 1)
Quarter: 2020Q2

REPORT INFORMATION
  Report Type: Report from Study
  Country: None (occurrence: US)
  Receive Date: 20200427
  Receipt Date: 20200427
  Transmission Date: 20200714
  Serious: No
  Sender: FDA-Public Use
  Company Number: US-BIOVITRUM-2020US0378

PATIENT
  Sex: Male

DRUGS (1)
  1. KINERET [Suspect]
     Active Substance: ANAKINRA
     Indication: STILL^S DISEASE
     Route: 058
     Dates: start: 20190418

REACTIONS (10)
  - Nasal congestion [Unknown]
  - Off label use [Unknown]
  - Arthritis [Unknown]
  - Arthralgia [Unknown]
  - Palpitations [Unknown]
  - Pain in extremity [Unknown]
  - Product dose omission [Unknown]
  - Ligament sprain [Unknown]
  - Ligament rupture [Unknown]
  - Sinusitis [Unknown]
